FAERS Safety Report 11052634 (Version 1)
Quarter: 2015Q2

REPORT INFORMATION
  Report Type: Spontaneous
  Country: AU (occurrence: None)
  Receive Date: 20150417
  Receipt Date: 20150417
  Transmission Date: 20150821
  Serious: Yes (Hospitalization)
  Sender: FDA-Public Use
  Company Number: AU-DEXPHARM-20150233

PATIENT
  Age: 18 Year
  Sex: Female

DRUGS (8)
  1. ATORVASTATIN [Suspect]
     Active Substance: ATORVASTATIN
  2. IRBESARTAN. [Suspect]
     Active Substance: IRBESARTAN
  3. METFORMIN [Suspect]
     Active Substance: METFORMIN HYDROCHLORIDE
  4. ASPIRIN. [Suspect]
     Active Substance: ASPIRIN
  5. GLICLIZIDE MR [Suspect]
     Active Substance: GLICLAZIDE
  6. THYROXINE [Suspect]
     Active Substance: LEVOTHYROXINE
  7. OMEPRAZOLE. [Suspect]
     Active Substance: OMEPRAZOLE
  8. CARBAMAZEPINE. [Suspect]
     Active Substance: CARBAMAZEPINE

REACTIONS (5)
  - Acidosis [None]
  - Hypoglycaemia [None]
  - Overdose [None]
  - Hypotension [None]
  - Hyperlactacidaemia [None]
